FAERS Safety Report 9892078 (Version 2)
Quarter: 2014Q2

REPORT INFORMATION
  Report Type: Spontaneous
  Country: US (occurrence: US)
  Receive Date: 20140212
  Receipt Date: 20140409
  Transmission Date: 20141212
  Serious: Yes (Hospitalization)
  Sender: FDA-Public Use
  Company Number: US-GLAXOSMITHKLINE-A1060695A

PATIENT
  Age: 62 Year
  Sex: Female

DRUGS (2)
  1. ADVAIR HFA [Suspect]
     Indication: ASTHMA
     Route: 065
     Dates: start: 20070222
  2. VENTOLIN [Suspect]
     Indication: ASTHMA
     Dosage: 90MCG UNKNOWN
     Route: 065
     Dates: start: 20070222

REACTIONS (1)
  - Investigation [Recovered/Resolved]
